FAERS Safety Report 6396694-4 (Version None)
Quarter: 2009Q4

REPORT INFORMATION
  Report Type: 
  Country: None (occurrence: None)
  Receive Date: 20091012
  Receipt Date: 20090929
  Transmission Date: 20100525
  Serious: Yes (Other)
  Sender: FDA-Public Use
  Company Number: US-PFIZER INC-2009279485

PATIENT
  Sex: Female
  Weight: 50 kg

DRUGS (15)
  1. CHANTIX [Suspect]
     Indication: SMOKING CESSATION THERAPY
     Dosage: FREQUENCY: 2X/DAY,
     Route: 048
     Dates: start: 20090915, end: 20090928
  2. DIGOXIN [Concomitant]
     Indication: CARDIAC DISORDER
     Route: 048
     Dates: start: 20090401
  3. WARFARIN SODIUM [Concomitant]
     Indication: ANTICOAGULANT THERAPY
     Route: 048
     Dates: start: 20090401
  4. LIPITOR [Concomitant]
     Indication: BLOOD CHOLESTEROL INCREASED
     Route: 048
     Dates: start: 20090601
  5. PAXIL [Concomitant]
     Indication: AFFECTIVE DISORDER
     Route: 048
     Dates: start: 20010101
  6. THEOPHYLLINE [Concomitant]
     Indication: ASTHMA
     Dosage: FREQUENCY: 2X/DAY,
     Route: 048
     Dates: start: 19700101
  7. COMBIVENT [Concomitant]
     Indication: ASTHMA
     Dosage: FREQUENCY: AS NEEDED,
     Dates: start: 19800101
  8. HYDROXYZINE [Concomitant]
     Indication: HYPERSENSITIVITY
     Dosage: FREQUENCY: 2X/DAY,
     Route: 048
     Dates: start: 19990101
  9. PRILOSEC [Concomitant]
     Indication: GASTROINTESTINAL DISORDER
     Route: 048
     Dates: start: 20080501
  10. OXYCODONE [Concomitant]
     Indication: PAIN
     Dosage: FREQUENCY: AS NEEDED,
     Route: 048
     Dates: start: 20010401
  11. MORPHINE SULFATE [Concomitant]
     Indication: PAIN
     Dosage: FREQUENCY: 3X/DAY,
     Route: 048
     Dates: start: 20010401
  12. ALBUTEROL SULFATE AUTOHALER [Concomitant]
     Indication: CHRONIC OBSTRUCTIVE PULMONARY DISEASE
     Dosage: FREQUENCY: AS NEEDED,
     Dates: start: 19800101
  13. ALBUTEROL SULFATE AUTOHALER [Concomitant]
     Indication: ASTHMA
  14. ADVAIR DISKUS 100/50 [Concomitant]
     Indication: CHRONIC OBSTRUCTIVE PULMONARY DISEASE
     Dosage: FREQUENCY: 2X/DAY,
     Dates: start: 20040101
  15. ADVAIR DISKUS 100/50 [Concomitant]
     Indication: ASTHMA

REACTIONS (9)
  - ANGER [None]
  - ANXIETY [None]
  - APPETITE DISORDER [None]
  - BALANCE DISORDER [None]
  - DEPRESSION [None]
  - DIZZINESS [None]
  - INSOMNIA [None]
  - MIGRAINE [None]
  - NIGHTMARE [None]
